FAERS Safety Report 21949764 (Version 1)
Quarter: 2023Q1

REPORT INFORMATION
  Report Type: Spontaneous
  Country: US (occurrence: US)
  Receive Date: 20230203
  Receipt Date: 20230203
  Transmission Date: 20230418
  Serious: No
  Sender: FDA-Public Use
  Company Number: US-GLENMARK PHARMACEUTICALS-2023GMK077594

PATIENT

DRUGS (1)
  1. RYALTRIS [Suspect]
     Active Substance: MOMETASONE FUROATE MONOHYDRATE\OLOPATADINE HYDROCHLORIDE
     Indication: Upper-airway cough syndrome
     Dosage: UNK, BID ONE SPRAY IN EACH NOSTRIL, TWICE A DAY
     Route: 045
     Dates: start: 20221205, end: 20221223

REACTIONS (1)
  - Drug ineffective for unapproved indication [Unknown]
